FAERS Safety Report 17960358 (Version 1)
Quarter: 2020Q2

REPORT INFORMATION
  Report Type: Report from Study
  Country: None (occurrence: US)
  Receive Date: 20200630
  Receipt Date: 20200630
  Transmission Date: 20200714
  Serious: No
  Sender: FDA-Public Use
  Company Number: US-BIOVITRUM-2020US3229

PATIENT
  Age: 28 Year
  Sex: Male

DRUGS (1)
  1. KINERET [Suspect]
     Active Substance: ANAKINRA
     Indication: PERICARDITIS ADHESIVE
     Route: 058
     Dates: start: 20200602

REACTIONS (7)
  - Injection site reaction [Unknown]
  - Secretion discharge [Unknown]
  - Paranasal sinus discomfort [Unknown]
  - Product dose omission [Unknown]
  - Off label use [Unknown]
  - Neck pain [Unknown]
  - Sinusitis [Unknown]

NARRATIVE: CASE EVENT DATE: 20200602
